FAERS Safety Report 8063685-7 (Version None)
Quarter: 2012Q1

REPORT INFORMATION
  Report Type: 
  Country: None (occurrence: None)
  Receive Date: 20120123
  Receipt Date: 20120112
  Transmission Date: 20120608
  Serious: Yes (Hospitalization)
  Sender: FDA-Public Use
  Company Number: US-BAYER-2011-054940

PATIENT
  Age: 15 Year
  Sex: Female
  Weight: 65.76 kg

DRUGS (4)
  1. DICYCLOMINE [Concomitant]
     Dosage: 20 MG, UNK
  2. IBUPROFEN [Concomitant]
  3. YASMIN [Suspect]
     Dosage: UNK
     Dates: start: 20050701, end: 20051001
  4. ENPRESSE [Concomitant]

REACTIONS (7)
  - ANXIETY [None]
  - ANHEDONIA [None]
  - MENTAL DISORDER [None]
  - PAIN [None]
  - INJURY [None]
  - GALLBLADDER DISORDER [None]
  - CHOLECYSTITIS CHRONIC [None]
